FAERS Safety Report 9214235 (Version 1)
Quarter: 2013Q2

REPORT INFORMATION
  Report Type: Spontaneous
  Country: US (occurrence: None)
  Receive Date: 20130404
  Receipt Date: 20130404
  Transmission Date: 20140414
  Serious: Yes (Other)
  Sender: FDA-Public Use
  Company Number: None

PATIENT
  Age: 59 Year
  Sex: Male
  Weight: 88.45 kg

DRUGS (4)
  1. ANDROGEL 1.62 % [Suspect]
     Dates: start: 201212
  2. NORVASC [Concomitant]
  3. ACIPHEX [Concomitant]
  4. SIMVASTATIN [Concomitant]

REACTIONS (1)
  - Thrombosis [None]
